FAERS Safety Report 7659592-1 (Version None)
Quarter: 2011Q3

REPORT INFORMATION
  Report Type: 
  Country: None (occurrence: None)
  Receive Date: 20110805
  Receipt Date: 20110802
  Transmission Date: 20111222
  Serious: Yes (Other)
  Sender: FDA-Public Use
  Company Number: US-PFIZER INC-2011143502

PATIENT
  Sex: Female
  Weight: 100 kg

DRUGS (15)
  1. HYDROCORTISONE [Suspect]
     Indication: HYPOPITUITARISM
     Dosage: 10MG AM, 5MG AFTERNOON, 5MG PM
     Route: 048
     Dates: start: 20100919, end: 20100924
  2. HYDROCORTISONE [Suspect]
     Dosage: 10MG+10MG+5MG
     Route: 048
     Dates: start: 20101123, end: 20101215
  3. CRESTOR [Concomitant]
     Indication: BLOOD CHOLESTEROL INCREASED
     Dosage: 5 MG, DAILY
     Route: 048
  4. HYDROCORTISONE [Suspect]
     Dosage: 10MG+5MG+5MG FOR 22 DOSES (APPROX. 7 DAYS)
     Route: 048
     Dates: start: 20101112
  5. VITAMIN D [Concomitant]
     Indication: VITAMIN D DEFICIENCY
     Dosage: 1000 IU, DAILY
     Route: 048
  6. VICODIN [Concomitant]
     Indication: PAIN
     Dosage: 500 MG, 2X/DAY
     Route: 048
  7. ASCORBIC ACID [Concomitant]
     Indication: VITAMIN C DEFICIENCY
     Dosage: 500 MG, DAILY
     Route: 048
  8. HYDROCORTISONE [Suspect]
     Dosage: 10MG, 5MG, 5MG
     Route: 048
     Dates: start: 20110415
  9. LOVAZA [Concomitant]
     Indication: BLOOD CHOLESTEROL INCREASED
     Dosage: 1000 MG, 3X/DAY
     Route: 048
  10. HYDROCORTISONE [Suspect]
     Indication: ADDISON'S DISEASE
     Dosage: 10 MG, 3X/DAY
     Route: 048
     Dates: start: 20100818, end: 20100916
  11. HYDROCORTISONE [Suspect]
     Dosage: 10MG+10MG+5MG
     Route: 048
     Dates: start: 20100924, end: 20101112
  12. HYDROCORTISONE [Suspect]
     Dosage: 10MG AM, 10MG PM
     Route: 048
     Dates: start: 20101215, end: 20110216
  13. HYDROCORTISONE [Suspect]
     Dosage: 10MG+5MG+5 MG FOR AN UNSPECIFIED TIME PERIOD
     Route: 048
     Dates: start: 20110216
  14. SYNTHROID [Concomitant]
     Indication: THYROID DISORDER
     Dosage: 50 UG, DAILY
     Route: 048
  15. VALIUM [Concomitant]
     Indication: ANXIETY
     Dosage: 5 MG, AS NEEDED
     Route: 048

REACTIONS (1)
  - WEIGHT INCREASED [None]
